FAERS Safety Report 7528928-4 (Version None)
Quarter: 2011Q2

REPORT INFORMATION
  Report Type: 
  Country: None (occurrence: None)
  Receive Date: 20110607
  Receipt Date: 20110524
  Transmission Date: 20111010
  Serious: Yes (Hospitalization)
  Sender: FDA-Public Use
  Company Number: PHHY2011US23089

PATIENT
  Sex: Male

DRUGS (3)
  1. COUGH AND COLD PREPARATIONS [Interacting]
  2. TASIGNA [Interacting]
     Dosage: UNK
  3. TASIGNA [Suspect]
     Indication: CHRONIC MYELOID LEUKAEMIA
     Dosage: 300 MG, BID
     Route: 048
     Dates: start: 20110119

REACTIONS (10)
  - PYREXIA [None]
  - WEIGHT INCREASED [None]
  - OEDEMA PERIPHERAL [None]
  - DRUG INTERACTION [None]
  - MYALGIA [None]
  - NASAL CONGESTION [None]
  - CARDIAC FAILURE [None]
  - DYSSTASIA [None]
  - ARTHRALGIA [None]
  - ASTHENIA [None]
